FAERS Safety Report 25860881 (Version 1)
Quarter: 2025Q3

REPORT INFORMATION
  Report Type: Spontaneous
  Country: US (occurrence: US)
  Receive Date: 20250929
  Receipt Date: 20250929
  Transmission Date: 20251020
  Serious: No
  Sender: SANOFI AVENTIS
  Company Number: US-SA-2025SA286111

PATIENT
  Age: 48 Year
  Sex: Male
  Weight: 125.65 kg

DRUGS (1)
  1. DUPIXENT [Suspect]
     Active Substance: DUPILUMAB
     Indication: Eosinophilic oesophagitis
     Dosage: 300 MG, QW
     Route: 058
     Dates: start: 20250108

REACTIONS (6)
  - Upper respiratory tract infection [Unknown]
  - Nasopharyngitis [Unknown]
  - Cough [Recovered/Resolved]
  - Ear pain [Recovered/Resolved]
  - Upper respiratory tract congestion [Recovered/Resolved]
  - Ear infection [Recovered/Resolved]

NARRATIVE: CASE EVENT DATE: 20250501
